FAERS Safety Report 8476801-X (Version None)
Quarter: 2012Q2

REPORT INFORMATION
  Report Type: 
  Country: None (occurrence: None)
  Receive Date: 20120628
  Receipt Date: 20120621
  Transmission Date: 20120825
  Serious: Yes (Life-Threatening, Hospitalization, Other)
  Sender: FDA-Public Use
  Company Number: JP-AMGEN-JPNSP2012037207

PATIENT
  Age: 68 Year
  Sex: Female
  Weight: 58 kg

DRUGS (20)
  1. PROCHLORPERAZINE [Concomitant]
     Indication: LARGE INTESTINE CARCINOMA
     Dosage: 5 MG, TID
     Route: 048
     Dates: end: 20120605
  2. DIART [Concomitant]
     Indication: HYPERTENSION
     Route: 048
     Dates: end: 20120602
  3. ISOSORBIDE DINITRATE [Concomitant]
     Indication: HYPERTENSION
     Route: 062
  4. ASPIRIN [Concomitant]
     Indication: MYOCARDIAL INFARCTION
     Route: 048
     Dates: end: 20120605
  5. CRESTOR [Concomitant]
     Indication: HYPERLIPIDAEMIA
     Route: 048
     Dates: end: 20120605
  6. RANMARK [Suspect]
     Indication: BONE CANCER METASTATIC
     Dosage: 120 MG, QWK
     Route: 058
     Dates: start: 20120524, end: 20120524
  7. LOXONIN [Concomitant]
     Dosage: 60 MG, TID
     Route: 048
     Dates: end: 20120605
  8. ALLOPURINOL [Concomitant]
     Indication: HYPERURICAEMIA
     Route: 048
     Dates: end: 20120605
  9. MUCOSTA [Concomitant]
     Indication: LARGE INTESTINE CARCINOMA
     Dosage: UNKNOWN
     Route: 048
     Dates: end: 20120605
  10. RANMARK [Suspect]
     Indication: LARGE INTESTINE CARCINOMA
     Route: 058
     Dates: start: 20120524, end: 20120524
  11. LOXONIN [Concomitant]
     Indication: LARGE INTESTINE CARCINOMA
     Dosage: UNKNOWN
     Route: 048
     Dates: end: 20120605
  12. OXYCONTIN [Concomitant]
     Indication: LARGE INTESTINE CARCINOMA
     Dosage: UNKNOWN
     Route: 048
     Dates: end: 20120612
  13. ADALAT CC [Concomitant]
     Indication: HYPERTENSION
     Route: 048
     Dates: end: 20120605
  14. ADALAT CC [Concomitant]
     Route: 048
     Dates: end: 20120605
  15. LANSOPRAZOLE [Concomitant]
     Route: 048
     Dates: end: 20120605
  16. MAGLAX [Concomitant]
     Indication: LARGE INTESTINE CARCINOMA
     Dosage: 330 MG, TID
     Route: 065
     Dates: end: 20120605
  17. FUROSEMIDE [Concomitant]
     Route: 048
     Dates: start: 20120531, end: 20120602
  18. BISOPROLOL FUMARATE [Concomitant]
     Indication: HYPERTENSION
     Route: 048
     Dates: end: 20120605
  19. MICARDIS [Concomitant]
     Indication: HYPERTENSION
     Route: 048
     Dates: end: 20120605
  20. LANSOPRAZOLE [Concomitant]
     Dosage: 30 MG, QD
     Route: 048
     Dates: end: 20120605

REACTIONS (4)
  - HYPOCALCAEMIA [None]
  - HYPERKALAEMIA [None]
  - HYPERCREATININAEMIA [None]
  - CARDIOGENIC SHOCK [None]
